FAERS Safety Report 6453209-X (Version None)
Quarter: 2009Q4

REPORT INFORMATION
  Report Type: 
  Country: None (occurrence: None)
  Receive Date: 20091123
  Receipt Date: 20091123
  Transmission Date: 20100525
  Serious: Yes (Hospitalization)
  Sender: FDA-Public Use
  Company Number: None

PATIENT
  Sex: Female

DRUGS (2)
  1. DOCETAXEL [Suspect]
     Indication: OVARIAN CANCER
     Dosage: 75 MG/M2 IV DRIP
     Route: 041
     Dates: start: 20080122, end: 20091117
  2. GEMCITABINE [Suspect]
     Indication: OVARIAN CANCER
     Dosage: 800 MG/M2 IV DRIP
     Route: 041
     Dates: start: 20080129, end: 20081117

REACTIONS (1)
  - SMALL INTESTINAL OBSTRUCTION [None]
